FAERS Safety Report 23841815 (Version 1)
Quarter: 2024Q2

REPORT INFORMATION
  Report Type: Spontaneous
  Country: US (occurrence: None)
  Receive Date: 20240509
  Receipt Date: 20240509
  Transmission Date: 20240716
  Serious: Yes (Other)
  Sender: FDA-Public Use
  Company Number: None

PATIENT
  Age: 67 Year
  Sex: Male
  Weight: 96.3 kg

DRUGS (9)
  1. LEQEMBI [Suspect]
     Active Substance: LECANEMAB-IRMB
     Indication: Dementia Alzheimer^s type
     Dosage: FREQUENCY : TWICE A WEEK;?
     Route: 042
     Dates: start: 20240404, end: 20240505
  2. DONEPEZIL [Concomitant]
     Active Substance: DONEPEZIL\DONEPEZIL HYDROCHLORIDE
  3. MEMANTINE [Concomitant]
     Active Substance: MEMANTINE
  4. SIMVASTATIN [Concomitant]
     Active Substance: SIMVASTATIN
  5. FLONASE [Concomitant]
     Active Substance: FLUTICASONE PROPIONATE
  6. METAMUCIL [Concomitant]
     Active Substance: PLANTAGO SEED
  7. VITAMIN D3+K2 [Concomitant]
  8. REFRESH OPTIVE EYE DROPS [Concomitant]
  9. ZYRTEC [Concomitant]
     Active Substance: CETIRIZINE HYDROCHLORIDE

REACTIONS (5)
  - Cold sweat [None]
  - Groin pain [None]
  - Headache [None]
  - Facial pain [None]
  - Brain oedema [None]

NARRATIVE: CASE EVENT DATE: 20240504
